FAERS Safety Report 5919159-X (Version None)
Quarter: 2008Q4

REPORT INFORMATION
  Report Type: 
  Country: None (occurrence: None)
  Receive Date: 20081015
  Receipt Date: 20081008
  Transmission Date: 20090506
  Serious: Yes (Other)
  Sender: FDA-Public Use
  Company Number: US-MERCK-0810USA01717

PATIENT
  Age: 57 Year
  Sex: Female

DRUGS (10)
  1. JANUMET [Suspect]
     Indication: TYPE 2 DIABETES MELLITUS
     Route: 048
  2. LEXAPRO [Concomitant]
     Route: 065
  3. SYNTHROID [Concomitant]
     Route: 065
  4. FLOMAX [Concomitant]
     Route: 065
  5. DETROL LA [Concomitant]
     Route: 065
  6. PREVACID [Concomitant]
     Route: 065
  7. LASIX [Concomitant]
     Route: 065
  8. [THERAPY UNSPECIFIED] [Concomitant]
     Route: 065
  9. ENALAPRIL MALEATE [Concomitant]
     Route: 065
  10. TRICOR [Concomitant]
     Route: 065

REACTIONS (1)
  - PANCREATITIS [None]
